FAERS Safety Report 9869266 (Version 2)
Quarter: 2014Q1

REPORT INFORMATION
  Report Type: Spontaneous
  Country: FR (occurrence: FR)
  Receive Date: 20140205
  Receipt Date: 20140314
  Transmission Date: 20141002
  Serious: Yes (Hospitalization, Other)
  Sender: FDA-Public Use
  Company Number: FR-JNJFOC-20140200313

PATIENT
  Age: 30 Year
  Sex: Female
  Weight: 99 kg

DRUGS (2)
  1. XARELTO [Suspect]
     Indication: EMBOLISM VENOUS
     Route: 048
     Dates: start: 20130817, end: 20130917
  2. XARELTO [Suspect]
     Indication: PULMONARY EMBOLISM
     Route: 048
     Dates: start: 20130817, end: 20130917

REACTIONS (3)
  - Metrorrhagia [Unknown]
  - Menstrual disorder [Unknown]
  - Menorrhagia [Unknown]
